FAERS Safety Report 5296180-9 (Version None)
Quarter: 2007Q2

REPORT INFORMATION
  Report Type: 
  Country: None (occurrence: None)
  Receive Date: 20070413
  Receipt Date: 20070409
  Transmission Date: 20071010
  Serious: Yes (Hospitalization)
  Sender: FDA-Public Use
  Company Number: US-GLAXOSMITHKLINE-A0646461A

PATIENT
  Age: 42 Year
  Sex: Female
  Weight: 69.1 kg

DRUGS (2)
  1. LAPATINIB [Suspect]
     Dosage: 1250MG PER DAY
     Route: 048
     Dates: start: 20070323
  2. CAPECITABINE [Suspect]
     Dosage: 1800MG TWICE PER DAY
     Route: 048
     Dates: start: 20070323

REACTIONS (3)
  - ABDOMINAL PAIN UPPER [None]
  - DIARRHOEA [None]
  - PYREXIA [None]
